FAERS Safety Report 12072385 (Version 1)
Quarter: 2016Q1

REPORT INFORMATION
  Report Type: Spontaneous
  Country: US (occurrence: US)
  Receive Date: 20160212
  Receipt Date: 20160212
  Transmission Date: 20160526
  Serious: No
  Sender: FDA-Public Use
  Company Number: US-ENDO PHARMACEUTICALS INC.-2016-000076

PATIENT
  Sex: Male
  Weight: 68.1 kg

DRUGS (1)
  1. XIAFLEX [Suspect]
     Active Substance: COLLAGENASE CLOSTRIDIUM HISTOLYTICUM
     Indication: PEYRONIE^S DISEASE
     Route: 026
     Dates: start: 2015

REACTIONS (3)
  - Skin discolouration [Unknown]
  - Inappropriate schedule of drug administration [Unknown]
  - Pain [Unknown]

NARRATIVE: CASE EVENT DATE: 2015
